FAERS Safety Report 19097634 (Version 1)
Quarter: 2021Q2

REPORT INFORMATION
  Report Type: Other
  Country: US (occurrence: US)
  Receive Date: 20210406
  Receipt Date: 20210406
  Transmission Date: 20210717
  Serious: Yes (Other)
  Sender: FDA-Public Use
  Company Number: US-ROCHE-2041124

PATIENT

DRUGS (14)
  1. ECULIZUMAB [Suspect]
     Active Substance: ECULIZUMAB
     Indication: MYASTHENIA GRAVIS
     Dosage: DAY 1, WEEK1, WEEK2 AND WEEK3.
     Route: 042
  2. MYCOPHENOLATE MOFETIL. [Suspect]
     Active Substance: MYCOPHENOLATE MOFETIL
     Indication: MYASTHENIA GRAVIS
     Route: 065
  3. AZATHIOPRINE. [Suspect]
     Active Substance: AZATHIOPRINE
     Indication: MYASTHENIA GRAVIS
     Route: 065
  4. CYCLOSPORINE. [Suspect]
     Active Substance: CYCLOSPORINE
     Indication: MYASTHENIA GRAVIS
     Route: 065
  5. TACROLIMUS. [Suspect]
     Active Substance: TACROLIMUS
     Indication: MYASTHENIA GRAVIS
     Route: 065
  6. PREDNISOLONE. [Suspect]
     Active Substance: PREDNISOLONE
     Indication: MYASTHENIA GRAVIS
     Route: 065
  7. METHYLPREDNISOLONE SODIUM SUCCINATE. [Suspect]
     Active Substance: METHYLPREDNISOLONE SODIUM SUCCINATE
     Indication: MYASTHENIA GRAVIS
     Route: 065
  8. MEPREDNISONE [Suspect]
     Active Substance: MEPREDNISONE
     Indication: MYASTHENIA GRAVIS
     Route: 065
  9. METHYLPREDNISOLONE. [Suspect]
     Active Substance: METHYLPREDNISOLONE
     Indication: MYASTHENIA GRAVIS
     Route: 065
  10. METHOTREXATE. [Suspect]
     Active Substance: METHOTREXATE
     Indication: MYASTHENIA GRAVIS
     Route: 065
  11. ECULIZUMAB [Suspect]
     Active Substance: ECULIZUMAB
     Indication: MYASTHENIA GRAVIS
     Route: 042
  12. ECULIZUMAB [Suspect]
     Active Substance: ECULIZUMAB
     Dosage: MAINTAINANCE DOSE: WEEK 4 AND THERE AFTER EVERY 2 WEEKS
     Route: 042
  13. CYCLOPHOSPHAMIDE. [Suspect]
     Active Substance: CYCLOPHOSPHAMIDE
     Indication: MYASTHENIA GRAVIS
     Route: 065
  14. PREDNISONE. [Suspect]
     Active Substance: PREDNISONE
     Indication: MYASTHENIA GRAVIS
     Route: 065

REACTIONS (36)
  - Urinary tract infection bacterial [Unknown]
  - Gastroenteritis [Unknown]
  - Urinary tract infection [Unknown]
  - Pseudomonas infection [Unknown]
  - Pneumonia [Unknown]
  - Pneumonia aspiration [Unknown]
  - Cytomegalovirus infection [Unknown]
  - Respiratory syncytial virus infection [Unknown]
  - Neuroendocrine carcinoma [Unknown]
  - Prostate cancer [Unknown]
  - Colon cancer [Unknown]
  - Appendicitis [Unknown]
  - Tonsillitis [Unknown]
  - Pseudomonal sepsis [Unknown]
  - Wound infection [Unknown]
  - Lymphoma [Unknown]
  - Malignant melanoma in situ [Unknown]
  - Bacteraemia [Unknown]
  - Upper respiratory tract infection [Unknown]
  - Sepsis [Unknown]
  - Myasthenia gravis [Unknown]
  - Diverticulitis [Unknown]
  - Endocarditis [Unknown]
  - Varicella [Unknown]
  - Bronchitis [Unknown]
  - Aspergillus infection [Unknown]
  - Bursitis infective staphylococcal [Unknown]
  - Colonic abscess [Unknown]
  - Septic shock [Unknown]
  - Metastases to bone [Unknown]
  - Influenza [Unknown]
  - Asymptomatic bacteriuria [Unknown]
  - Localised infection [Unknown]
  - Periorbital cellulitis [Unknown]
  - Rectal abscess [Unknown]
  - Skin papilloma [Unknown]
